FAERS Safety Report 8567828-8 (Version None)
Quarter: 2012Q3

REPORT INFORMATION
  Report Type: 
  Country: None (occurrence: None)
  Receive Date: 20120803
  Receipt Date: 20120727
  Transmission Date: 20120928
  Serious: Yes (Hospitalization)
  Sender: FDA-Public Use
  Company Number: FR-PFIZER INC-2012182064

PATIENT
  Age: 66 Year
  Sex: Female

DRUGS (9)
  1. FUROSEMIDE [Suspect]
     Dosage: 20 MG, 1X/DAY
     Route: 048
     Dates: start: 20120520, end: 20120524
  2. LEVOTHYROX 50 [Concomitant]
     Dosage: UNK
  3. ATORVASTATIN [Suspect]
     Dosage: 10 MG, 1X/DAY
     Route: 048
     Dates: end: 20120525
  4. NOVONORM 1 [Concomitant]
     Dosage: 1 DF, 3X/DAY
  5. RAMIPRIL BIOGARAN [Suspect]
     Indication: HYPERTENSION
     Dosage: 10 MG, 1X/DAY
     Route: 048
     Dates: start: 20120519, end: 20120524
  6. METFORMINE BIOGARAN [Suspect]
     Indication: TYPE 2 DIABETES MELLITUS
     Dosage: 1 G, 3X/DAY
     Route: 048
     Dates: end: 20120524
  7. BISOPROLOL BIOGARAN [Suspect]
     Dosage: 5 MG, 1X/DAY
     Route: 048
     Dates: end: 20120526
  8. COUMADIN [Concomitant]
     Dosage: UNK
  9. AMIODARONE [Concomitant]
     Dosage: ^200^

REACTIONS (2)
  - CARDIAC FAILURE [None]
  - RENAL FAILURE [None]
